FAERS Safety Report 5085364-0 (Version None)
Quarter: 2006Q3

REPORT INFORMATION
  Report Type: 
  Country: None (occurrence: None)
  Receive Date: 20060731
  Receipt Date: 20060316
  Transmission Date: 20061208
  Serious: Yes (Life-Threatening, Hospitalization)
  Sender: FDA-Public Use
  Company Number: 200611038BWH

PATIENT
  Age: 65 Year
  Sex: Female
  Weight: 111.1313 kg

DRUGS (1)
  1. AVELOX [Suspect]
     Indication: CHRONIC OBSTRUCTIVE PULMONARY DISEASE
     Dosage: ONCE, ORAL
     Route: 048
     Dates: start: 20060217

REACTIONS (1)
  - ANAPHYLACTIC REACTION [None]
